FAERS Safety Report 5407918-1 (Version None)
Quarter: 2007Q3

REPORT INFORMATION
  Report Type: 
  Country: None (occurrence: None)
  Receive Date: 20070803
  Receipt Date: 20070730
  Transmission Date: 20080115
  Serious: Yes (Life-Threatening, Hospitalization)
  Sender: FDA-Public Use
  Company Number: US 2007 0004

PATIENT
  Sex: Female

DRUGS (1)
  1. OXILAN-300 [Suspect]
     Dosage: 50 ML
     Dates: start: 20070712, end: 20070720

REACTIONS (4)
  - ATRIAL FIBRILLATION [None]
  - MYOCARDIAL INFARCTION [None]
  - RESPIRATORY ARREST [None]
  - VISUAL DISTURBANCE [None]
